FAERS Safety Report 9249320 (Version 2)
Quarter: 2013Q2

REPORT INFORMATION
  Report Type: Report from Study
  Country: US (occurrence: US)
  Receive Date: 20130423
  Receipt Date: 20130507
  Transmission Date: 20140414
  Serious: Yes (Other)
  Sender: FDA-Public Use
  Company Number: US-BAYER-2013-048254

PATIENT
  Age: 79 Year
  Sex: Male

DRUGS (3)
  1. STIVARGA [Suspect]
     Indication: COLON CANCER
     Dosage: 160 MG, QD
     Route: 048
     Dates: start: 20130408, end: 20130415
  2. XELODA [Concomitant]
     Dosage: UNK
     Dates: start: 20121201, end: 20130301
  3. COUMADIN [Concomitant]

REACTIONS (5)
  - Blood pressure increased [Not Recovered/Not Resolved]
  - Local swelling [Not Recovered/Not Resolved]
  - Blister [Recovered/Resolved]
  - Pain in extremity [Recovered/Resolved]
  - Gait disturbance [Recovered/Resolved]
